FAERS Safety Report 11773938 (Version 1)
Quarter: 2015Q4

REPORT INFORMATION
  Report Type: Report from Study
  Country: US (occurrence: US)
  Receive Date: 20151124
  Receipt Date: 20151124
  Transmission Date: 20160304
  Serious: Yes (Hospitalization, Other)
  Sender: FDA-Public Use
  Company Number: US-BAYER-2015-461919

PATIENT
  Age: 55 Year
  Sex: Female

DRUGS (1)
  1. STIVARGA [Suspect]
     Active Substance: REGORAFENIB
     Indication: COLORECTAL CANCER METASTATIC
     Dosage: 160 MG, QD
     Route: 048
     Dates: start: 20151025, end: 20151105

REACTIONS (11)
  - Urinary tract infection [None]
  - Constipation [None]
  - Abdominal distension [None]
  - Blood pressure increased [None]
  - Confusional state [None]
  - Fatigue [None]
  - Back pain [None]
  - Pyrexia [None]
  - Sepsis [None]
  - Blood pressure increased [None]
  - Asthenia [None]

NARRATIVE: CASE EVENT DATE: 2015
